FAERS Safety Report 6108178-9 (Version None)
Quarter: 2009Q1

REPORT INFORMATION
  Report Type: 
  Country: None (occurrence: None)
  Receive Date: 20090309
  Receipt Date: 20090226
  Transmission Date: 20090719
  Serious: Yes (Life-Threatening)
  Sender: FDA-Public Use
  Company Number: JP-ABBOTT-07P-087-0422738-00

PATIENT
  Age: 74 Year
  Sex: Male
  Weight: 54.8 kg

DRUGS (3)
  1. LEUPLIN SR FOR INJECTION KIT [Suspect]
     Indication: PROSTATE CANCER STAGE II
     Route: 058
     Dates: start: 20070216
  2. LEUPLIN SR FOR INJECTION KIT [Suspect]
     Dates: start: 20061020, end: 20070210
  3. CASODEX [Concomitant]
     Indication: PROSTATE CANCER STAGE II
     Route: 048

REACTIONS (2)
  - COLON CANCER [None]
  - MELAENA [None]
